FAERS Safety Report 5477039-0 (Version None)
Quarter: 2007Q4

REPORT INFORMATION
  Report Type: 
  Country: None (occurrence: None)
  Receive Date: 20071004
  Receipt Date: 20070924
  Transmission Date: 20080405
  Serious: Yes (Other)
  Sender: FDA-Public Use
  Company Number: US-JNJFOC-20070904978

PATIENT
  Sex: Female

DRUGS (4)
  1. REMICADE [Suspect]
     Indication: CROHN'S DISEASE
     Route: 042
  2. ACYCLOVIR [Concomitant]
     Indication: HERPES VIRUS INFECTION
  3. FOLATE [Concomitant]
     Indication: PREGNANCY
  4. PRENATAL VITAMINS [Concomitant]
     Indication: PREGNANCY

REACTIONS (2)
  - DRUG EXPOSURE DURING PREGNANCY [None]
  - POST PROCEDURAL HAEMORRHAGE [None]
